FAERS Safety Report 8961364 (Version 1)
Quarter: 2012Q4

REPORT INFORMATION
  Report Type: 
  Country: US (occurrence: US)
  Receive Date: 20121213
  Receipt Date: 20121213
  Transmission Date: 20130627
  Serious: No
  Sender: FDA-Public Use
  Company Number: US-BAYER-2012-130272

PATIENT
  Age: 46 Year
  Sex: Female

DRUGS (1)
  1. MIRENA [Suspect]
     Indication: MENSTRUATION INCREASED
     Dosage: 20 mcg/24hr, CONT
     Route: 015
     Dates: start: 20120918, end: 20121206

REACTIONS (4)
  - Menorrhagia [None]
  - Abdominal pain lower [None]
  - Device expulsion [None]
  - Drug ineffective [None]
